FAERS Safety Report 6607983-X (Version None)
Quarter: 2010Q1

REPORT INFORMATION
  Report Type: 
  Country: None (occurrence: None)
  Receive Date: 20100226
  Receipt Date: 20100226
  Transmission Date: 20100710
  Serious: Yes (Hospitalization)
  Sender: FDA-Public Use
  Company Number: None

PATIENT
  Age: 56 Year
  Sex: Male
  Weight: 176.99 kg

DRUGS (2)
  1. WARFARIN SODIUM [Suspect]
     Indication: ATRIAL FIBRILLATION
     Dosage: 72.5 MG QWEEK PO
     Route: 048
     Dates: start: 20080414
  2. ASPIRIN [Suspect]
     Indication: DEEP VEIN THROMBOSIS
     Dosage: 81 MG EVERY DAY PO
     Route: 048
     Dates: start: 20000302

REACTIONS (4)
  - EAR HAEMORRHAGE [None]
  - GASTRITIS [None]
  - HAEMATOCRIT DECREASED [None]
  - HAEMORRHAGE [None]
